FAERS Safety Report 9279295 (Version 1)
Quarter: 2013Q2

REPORT INFORMATION
  Report Type: Spontaneous
  Country: US (occurrence: US)
  Receive Date: 20130508
  Receipt Date: 20130508
  Transmission Date: 20140414
  Serious: No
  Sender: FDA-Public Use
  Company Number: US-ASTRAZENECA-2013SE26384

PATIENT
  Sex: Male

DRUGS (1)
  1. SYMBICORT PMDI [Suspect]
     Dosage: 160/4.5 UG 2 PUFFS BID
     Route: 055

REACTIONS (2)
  - Bronchitis [Unknown]
  - Intentional drug misuse [Unknown]
